FAERS Safety Report 6317703-4 (Version None)
Quarter: 2009Q3

REPORT INFORMATION
  Report Type: 
  Country: None (occurrence: None)
  Receive Date: 20090820
  Receipt Date: 20090820
  Transmission Date: 20100115
  Serious: Yes (Life-Threatening, Disabling)
  Sender: FDA-Public Use
  Company Number: None

PATIENT
  Age: 62 Year
  Sex: Male
  Weight: 95.2554 kg

DRUGS (2)
  1. LIPITOR [Suspect]
     Indication: BLOOD CHOLESTEROL INCREASED
     Dosage: 20 MG ONCE PER DAY PO
     Route: 048
     Dates: start: 19850410, end: 20090610
  2. TRICOR [Suspect]
     Indication: BLOOD TRIGLYCERIDES INCREASED
     Dosage: 145 MG ONCE PER DAY PO
     Route: 048
     Dates: start: 20090320, end: 20090430

REACTIONS (5)
  - ASTHENIA [None]
  - BLOOD CREATINE INCREASED [None]
  - DECREASED ACTIVITY [None]
  - GAIT DISTURBANCE [None]
  - MYALGIA [None]
